FAERS Safety Report 9281714 (Version 3)
Quarter: 2014Q1

REPORT INFORMATION
  Report Type: Spontaneous
  Country: US (occurrence: US)
  Receive Date: 20130510
  Receipt Date: 20140321
  Transmission Date: 20141002
  Serious: Yes (Death, Hospitalization)
  Sender: FDA-Public Use
  Company Number: US-B.I. PHARMACEUTICALS,INC./RIDGEFIELD-2013-BI-13048BP

PATIENT
  Sex: Female
  Weight: 72.57 kg

DRUGS (16)
  1. PRADAXA [Suspect]
     Indication: ATRIAL FIBRILLATION
     Dosage: 300 MG
     Route: 048
     Dates: start: 201108, end: 20120206
  2. THEOPHYLLINE ER [Concomitant]
     Dosage: 600 MG
     Route: 048
  3. PREDNISONE [Concomitant]
     Dosage: 7.5 MG
     Route: 048
  4. FLUOXETINE [Concomitant]
     Dosage: 40 MG
     Route: 048
  5. GABAPENTIN [Concomitant]
     Dosage: 900 MG
     Route: 048
  6. HCTZ [Concomitant]
     Dosage: 25 MG
     Route: 048
  7. KLOR-CON [Concomitant]
     Dosage: 40 MEQ
     Route: 048
  8. FUROSEMIDE [Concomitant]
     Dosage: 40 MG
     Route: 048
  9. NEXIUM [Concomitant]
     Dosage: 20 MG
     Route: 048
  10. BISACODYL [Concomitant]
     Dosage: 5 MG
     Route: 065
  11. VICODIN ES [Concomitant]
     Indication: PAIN
     Route: 048
  12. FENTANYL PATCH [Concomitant]
     Indication: PAIN
     Dosage: 8.3333 MG
     Route: 062
  13. PERFOROMIST [Concomitant]
     Indication: CHRONIC OBSTRUCTIVE PULMONARY DISEASE
     Route: 055
  14. VALIUM [Concomitant]
     Indication: ANXIETY
     Dosage: 30 MG
     Route: 048
  15. BUDESONIDE [Concomitant]
     Indication: CHRONIC OBSTRUCTIVE PULMONARY DISEASE
     Route: 055
  16. ALBUTEROL [Concomitant]
     Indication: PULMONARY CONGESTION
     Route: 055

REACTIONS (1)
  - Gastrointestinal haemorrhage [Fatal]
